FAERS Safety Report 4587945-7 (Version None)
Quarter: 2005Q1

REPORT INFORMATION
  Report Type: 
  Country: None (occurrence: None)
  Receive Date: 20050215
  Receipt Date: 20050131
  Transmission Date: 20050727
  Serious: Yes (Life-Threatening, Disabling)
  Sender: FDA-Public Use
  Company Number: DSK-2004-03805

PATIENT
  Age: 68 Year
  Sex: Male

DRUGS (8)
  1. SALIGREN [Suspect]
     Indication: SJOGREN'S SYNDROME
     Dosage: 90 MG (30 MG, 3 IN 1 D), PER ORAL
     Route: 048
     Dates: start: 20030704, end: 20030806
  2. URSODIOL [Concomitant]
  3. FAMOTIDINE [Concomitant]
  4. CALSLOT (MANIDIPINE HYDROCHLORIDE) [Concomitant]
  5. ASPIRIN [Concomitant]
  6. TICLOPIDINE HCL [Concomitant]
  7. FOIPAN (CAMOSTAT MESILATE) [Concomitant]
  8. EUGLUCON (GLIBENCLAMIDE) [Concomitant]

REACTIONS (4)
  - FATIGUE [None]
  - INTERSTITIAL LUNG DISEASE [None]
  - PLEURAL EFFUSION [None]
  - THROMBOCYTOPENIA [None]
